FAERS Safety Report 8757440 (Version 2)
Quarter: 2013Q1

REPORT INFORMATION
  Report Type: Spontaneous
  Country: BR (occurrence: BR)
  Receive Date: 20120828
  Receipt Date: 20130211
  Transmission Date: 20140127
  Serious: Yes (Other)
  Sender: FDA-Public Use
  Company Number: PHHY2012BR073761

PATIENT
  Age: 16 Year
  Sex: Male

DRUGS (1)
  1. RITALINA [Suspect]
     Indication: ATTENTION DEFICIT/HYPERACTIVITY DISORDER
     Dosage: 1 DF, BID
     Route: 048
     Dates: start: 20120717

REACTIONS (2)
  - Gynaecomastia [Not Recovered/Not Resolved]
  - Breast enlargement [Not Recovered/Not Resolved]
